FAERS Safety Report 17529241 (Version 1)
Quarter: 2020Q1

REPORT INFORMATION
  Report Type: Spontaneous
  Country: FR (occurrence: FR)
  Receive Date: 20200312
  Receipt Date: 20200312
  Transmission Date: 20200409
  Serious: Yes (Other)
  Sender: FDA-Public Use
  Company Number: FR-ROCHE-2564773

PATIENT
  Age: 50 Year
  Sex: Female
  Weight: 53 kg

DRUGS (2)
  1. PERJETA [Suspect]
     Active Substance: PERTUZUMAB
     Indication: INTRADUCTAL PROLIFERATIVE BREAST LESION
     Route: 041
     Dates: start: 201909, end: 20191223
  2. HERCEPTIN [Suspect]
     Active Substance: TRASTUZUMAB
     Indication: INTRADUCTAL PROLIFERATIVE BREAST LESION
     Route: 041
     Dates: start: 201909, end: 20191223

REACTIONS (2)
  - Electrocardiogram repolarisation abnormality [Recovered/Resolved]
  - Cardiac function test abnormal [Recovered/Resolved]

NARRATIVE: CASE EVENT DATE: 201912
